FAERS Safety Report 14900063 (Version 1)
Quarter: 2018Q2

REPORT INFORMATION
  Report Type: Spontaneous
  Country: FR (occurrence: FR)
  Receive Date: 20180516
  Receipt Date: 20180516
  Transmission Date: 20180711
  Serious: Yes (Other)
  Sender: FDA-Public Use
  Company Number: FR-MERCK KGAA-2047874

PATIENT
  Age: 69 Year
  Sex: Female

DRUGS (1)
  1. NOVOTHYROX [Suspect]
     Active Substance: LEVOTHYROXINE SODIUM
     Indication: PRODUCT USED FOR UNKNOWN INDICATION
     Dates: start: 201704, end: 2017

REACTIONS (23)
  - Musculoskeletal pain [Not Recovered/Not Resolved]
  - Malaise [None]
  - Grip strength decreased [None]
  - Haemoglobin decreased [None]
  - Insomnia [None]
  - Somnolence [None]
  - Headache [Recovered/Resolved]
  - Epistaxis [Recovered/Resolved]
  - Loss of personal independence in daily activities [None]
  - Social avoidant behaviour [None]
  - Crying [None]
  - Alopecia [None]
  - Arrhythmia [None]
  - Pain in extremity [Not Recovered/Not Resolved]
  - Dysstasia [None]
  - Dizziness [None]
  - Apathy [None]
  - Myalgia [Not Recovered/Not Resolved]
  - Aggression [None]
  - Red blood cell sedimentation rate increased [None]
  - Mobility decreased [Recovered/Resolved]
  - Mood altered [None]
  - Muscle spasms [None]

NARRATIVE: CASE EVENT DATE: 2017
